FAERS Safety Report 4686310-1 (Version None)
Quarter: 2005Q2

REPORT INFORMATION
  Report Type: 
  Country: None (occurrence: None)
  Receive Date: 20050606
  Receipt Date: 20050601
  Transmission Date: 20051028
  Serious: Yes (Life-Threatening)
  Sender: FDA-Public Use
  Company Number: 207285

PATIENT
  Age: 77 Year
  Sex: Female

DRUGS (3)
  1. ACTIVASE [Suspect]
     Indication: CEREBROVASCULAR ACCIDENT
     Dosage: 70 MG,
     Dates: start: 20040419, end: 20040419
  2. EBRANTIL (URAPIDIL) [Concomitant]
  3. ACTRAPID (INSULIN) [Concomitant]

REACTIONS (2)
  - ANAPHYLACTIC REACTION [None]
  - ANGIONEUROTIC OEDEMA [None]
